FAERS Safety Report 21396200 (Version 1)
Quarter: 2022Q3

REPORT INFORMATION
  Report Type: Spontaneous
  Country: US (occurrence: None)
  Receive Date: 20220928
  Receipt Date: 20220928
  Transmission Date: 20221027
  Serious: Yes (Other)
  Sender: FDA-Public Use
  Company Number: None

PATIENT
  Age: 48 Year
  Sex: Male
  Weight: 101.2 kg

DRUGS (1)
  1. EPINEPHRINE\LIDOCAINE [Suspect]
     Active Substance: EPINEPHRINE\LIDOCAINE
     Indication: Dental operation
     Dosage: FREQUENCY : ONCE;?
     Dates: start: 20220929, end: 20220929

REACTIONS (7)
  - Chest discomfort [None]
  - Presyncope [None]
  - Hyperhidrosis [None]
  - Dyspnoea [None]
  - Tremor [None]
  - Hypotension [None]
  - Tachycardia [None]

NARRATIVE: CASE EVENT DATE: 20220927
